FAERS Safety Report 6427369-0 (Version None)
Quarter: 2009Q4

REPORT INFORMATION
  Report Type: 
  Country: None (occurrence: None)
  Receive Date: 20091104
  Receipt Date: 20091028
  Transmission Date: 20100525
  Serious: Yes (Other)
  Sender: FDA-Public Use
  Company Number: US-RB-023586-09

PATIENT
  Age: 55 Year
  Sex: Female

DRUGS (3)
  1. SUBOXONE [Suspect]
     Route: 065
     Dates: start: 20091005, end: 20091025
  2. SUBOXONE [Suspect]
     Dosage: 2 TO 8 MG DAILY VARIED
     Route: 065
     Dates: start: 20090801, end: 20091004
  3. XANAX [Concomitant]
     Indication: ANXIETY DISORDER
     Dosage: DOSING DETAILS UNKONWN
     Route: 065

REACTIONS (3)
  - DRUG WITHDRAWAL SYNDROME [None]
  - HALLUCINATION [None]
  - VOMITING [None]
